FAERS Safety Report 9414576 (Version 3)
Quarter: 2013Q4

REPORT INFORMATION
  Report Type: Report from Study
  Country: BR (occurrence: BR)
  Receive Date: 20130723
  Receipt Date: 20131024
  Transmission Date: 20140711
  Serious: Yes (Hospitalization)
  Sender: FDA-Public Use
  Company Number: BR-US-EMD SERONO, INC.-7209996

PATIENT
  Age: 35 Year
  Sex: Female

DRUGS (5)
  1. REBIF [Suspect]
     Indication: RELAPSING-REMITTING MULTIPLE SCLEROSIS
     Dates: start: 20130214
  2. BACLOFEN [Concomitant]
     Indication: PRODUCT USED FOR UNKNOWN INDICATION
  3. RETEMIC [Concomitant]
     Indication: PRODUCT USED FOR UNKNOWN INDICATION
  4. GABAPENTINE [Concomitant]
     Indication: PAIN
  5. ESCITALOPRAM [Concomitant]
     Indication: SEDATION

REACTIONS (11)
  - Vision blurred [Recovering/Resolving]
  - Muscle spasms [Recovering/Resolving]
  - Muscular weakness [Recovering/Resolving]
  - Balance disorder [Recovering/Resolving]
  - Oral discomfort [Recovering/Resolving]
  - Urinary incontinence [Recovering/Resolving]
  - Neck pain [Recovering/Resolving]
  - Back pain [Recovering/Resolving]
  - Sensory loss [Recovering/Resolving]
  - Fall [Recovering/Resolving]
  - Fatigue [Recovering/Resolving]
